FAERS Safety Report 9970971 (Version 1)
Quarter: 2014Q1

REPORT INFORMATION
  Report Type: Spontaneous
  Country: US (occurrence: None)
  Receive Date: 20140305
  Receipt Date: 20140305
  Transmission Date: 20141002
  Serious: Yes (Other)
  Sender: FDA-Public Use
  Company Number: None

PATIENT
  Age: 59 Year
  Sex: Female
  Weight: 70.31 kg

DRUGS (1)
  1. SIMVASTATIN [Suspect]
     Indication: BLOOD CHOLESTEROL INCREASED
     Dosage: TAKEN BY MOUTH
     Dates: start: 20131111, end: 20140217

REACTIONS (9)
  - Hypersensitivity [None]
  - Arthritis [None]
  - Muscle spasms [None]
  - Tenderness [None]
  - Arthralgia [None]
  - Muscle spasms [None]
  - Gait disturbance [None]
  - Paraesthesia [None]
  - Fear [None]
